FAERS Safety Report 7651362-3 (Version None)
Quarter: 2011Q3

REPORT INFORMATION
  Report Type: 
  Country: None (occurrence: None)
  Receive Date: 20110802
  Receipt Date: 20110720
  Transmission Date: 20111222
  Serious: Yes (Other)
  Sender: FDA-Public Use
  Company Number: PHHY2011US65124

PATIENT

DRUGS (1)
  1. TASIGNA [Suspect]
     Dosage: UNK UKN, UNK

REACTIONS (1)
  - CEREBROVASCULAR ACCIDENT [None]
